FAERS Safety Report 6714522-1 (Version None)
Quarter: 2010Q2

REPORT INFORMATION
  Report Type: 
  Country: None (occurrence: None)
  Receive Date: 20100506
  Receipt Date: 20100503
  Transmission Date: 20101027
  Serious: Yes (Death)
  Sender: FDA-Public Use
  Company Number: US-GILEAD-2010-0028913

PATIENT
  Sex: Female
  Weight: 68.1 kg

DRUGS (16)
  1. LETAIRIS [Suspect]
     Indication: PULMONARY ARTERIAL HYPERTENSION
     Route: 048
     Dates: start: 20100113
  2. COUMADIN [Concomitant]
  3. LASIX [Concomitant]
  4. COREG [Concomitant]
  5. ALDACTONE [Concomitant]
  6. AMIODARONE [Concomitant]
  7. OXYCODONE HCL [Concomitant]
  8. PERCOCET [Concomitant]
  9. LANOXIN [Concomitant]
  10. ADVAIR DISKUS 100/50 [Concomitant]
  11. ALBUTEROL [Concomitant]
  12. PROVENTIL [Concomitant]
  13. SINGULAIR [Concomitant]
  14. BACLOFEN [Concomitant]
  15. SPIRIVA [Concomitant]
  16. AMITRIPTLINE HYDROCHLORIDE TAB [Concomitant]

REACTIONS (1)
  - DEATH [None]
